FAERS Safety Report 5135886-9 (Version None)
Quarter: 2006Q4

REPORT INFORMATION
  Report Type: 
  Country: None (occurrence: None)
  Receive Date: 20061020
  Receipt Date: 20060922
  Transmission Date: 20070319
  Serious: Yes (Hospitalization)
  Sender: FDA-Public Use
  Company Number: RB-4131-2006

PATIENT
  Age: 37 Year
  Sex: Male

DRUGS (5)
  1. SUBOXONE [Suspect]
     Indication: DRUG DEPENDENCE
     Dosage: 24MG 1X SUBLINGUAL, 16MG 1X SUBLINGUAL, 8MG 1X SUBLINGUAL, 4MG 1X SUBLINGUAL, 2MG 1X SUBLINGUAL
     Route: 060
     Dates: start: 20050119, end: 20050501
  2. SUBOXONE [Suspect]
     Indication: DRUG DEPENDENCE
     Dosage: 24MG 1X SUBLINGUAL, 16MG 1X SUBLINGUAL, 8MG 1X SUBLINGUAL, 4MG 1X SUBLINGUAL, 2MG 1X SUBLINGUAL
     Route: 060
     Dates: start: 20050502, end: 20060201
  3. SUBOXONE [Suspect]
     Indication: DRUG DEPENDENCE
     Dosage: 24MG 1X SUBLINGUAL, 16MG 1X SUBLINGUAL, 8MG 1X SUBLINGUAL, 4MG 1X SUBLINGUAL, 2MG 1X SUBLINGUAL
     Route: 060
     Dates: start: 20060202, end: 20060301
  4. SUBOXONE [Suspect]
     Indication: DRUG DEPENDENCE
     Dosage: 24MG 1X SUBLINGUAL, 16MG 1X SUBLINGUAL, 8MG 1X SUBLINGUAL, 4MG 1X SUBLINGUAL, 2MG 1X SUBLINGUAL
     Route: 060
     Dates: start: 20060302, end: 20060725
  5. SUBOXONE [Suspect]
     Indication: DRUG DEPENDENCE
     Dosage: 24MG 1X SUBLINGUAL, 16MG 1X SUBLINGUAL, 8MG 1X SUBLINGUAL, 4MG 1X SUBLINGUAL, 2MG 1X SUBLINGUAL
     Route: 060
     Dates: start: 20060726, end: 20060915

REACTIONS (2)
  - ERECTILE DYSFUNCTION [None]
  - HEPATIC FAILURE [None]
